FAERS Safety Report 5122295-1 (Version None)
Quarter: 2006Q4

REPORT INFORMATION
  Report Type: 
  Country: None (occurrence: None)
  Receive Date: 20061003
  Receipt Date: 20060927
  Transmission Date: 20070319
  Serious: Yes (Death)
  Sender: FDA-Public Use
  Company Number: FACT0600363

PATIENT
  Age: 83 Year
  Sex: Female

DRUGS (1)
  1. FACTIVE [Suspect]
     Indication: RESPIRATORY TRACT INFECTION BACTERIAL

REACTIONS (3)
  - CEREBROVASCULAR ACCIDENT [None]
  - CLOSTRIDIAL INFECTION [None]
  - RASH [None]
